FAERS Safety Report 5484271-9 (Version None)
Quarter: 2007Q4

REPORT INFORMATION
  Report Type: 
  Country: None (occurrence: None)
  Receive Date: 20071010
  Receipt Date: 20071004
  Transmission Date: 20080405
  Serious: Yes (Other)
  Sender: FDA-Public Use
  Company Number: TPA2007A01919

PATIENT
  Age: 63 Year
  Sex: Male
  Weight: 127.0072 kg

DRUGS (3)
  1. ACTOS [Suspect]
     Indication: DIABETES MELLITUS
     Dosage: SEE IMAGE
     Route: 048
     Dates: start: 20060101, end: 20060101
  2. ACTOS [Suspect]
     Indication: DIABETES MELLITUS
     Dosage: SEE IMAGE
     Route: 048
     Dates: end: 20070801
  3. ACTOS [Suspect]
     Indication: DIABETES MELLITUS
     Dosage: SEE IMAGE
     Route: 048
     Dates: start: 20070301

REACTIONS (3)
  - CARDIAC FAILURE CONGESTIVE [None]
  - FLUID RETENTION [None]
  - PNEUMONIA [None]
